FAERS Safety Report 11872515 (Version 1)
Quarter: 2015Q4

REPORT INFORMATION
  Report Type: Spontaneous
  Country: US (occurrence: US)
  Receive Date: 20151228
  Receipt Date: 20151228
  Transmission Date: 20160305
  Serious: Yes (Hospitalization, Other)
  Sender: FDA-Public Use
  Company Number: US-SA-2015SA215942

PATIENT
  Age: 45 Year
  Sex: Male

DRUGS (4)
  1. MYCOPHENOLATE MOFETIL. [Concomitant]
     Active Substance: MYCOPHENOLATE MOFETIL
     Indication: IMMUNOSUPPRESSION
  2. ALEMTUZUMAB [Suspect]
     Active Substance: ALEMTUZUMAB
     Indication: IMMUNOSUPPRESSANT DRUG THERAPY
     Route: 065
  3. TACROLIMUS. [Concomitant]
     Active Substance: TACROLIMUS
     Indication: IMMUNOSUPPRESSION
     Dosage: DOSE: MEAN=9 NG/ML
  4. MYCOPHENOLATE MOFETIL. [Concomitant]
     Active Substance: MYCOPHENOLATE MOFETIL
     Indication: IMMUNOSUPPRESSION

REACTIONS (24)
  - Cranial nerve paralysis [Unknown]
  - Bulbar palsy [Unknown]
  - Urinary retention [Recovering/Resolving]
  - Enterovirus infection [Unknown]
  - Off label use [Unknown]
  - Acute disseminated encephalomyelitis [Unknown]
  - Lethargy [Unknown]
  - Dysphagia [Recovering/Resolving]
  - Paralysis [Not Recovered/Not Resolved]
  - CSF red blood cell count positive [Unknown]
  - Asthenia [Recovering/Resolving]
  - Ataxia [Unknown]
  - Viral upper respiratory tract infection [Unknown]
  - CSF white blood cell count increased [Unknown]
  - CSF protein increased [Unknown]
  - Rhinovirus infection [Unknown]
  - Sneezing [Unknown]
  - Pyrexia [Unknown]
  - Dysphonia [Unknown]
  - Diplopia [Recovering/Resolving]
  - Dysarthria [Unknown]
  - Gait disturbance [Recovered/Resolved]
  - Cough [Unknown]
  - Nuclear magnetic resonance imaging abnormal [Unknown]
